FAERS Safety Report 14144927 (Version 1)
Quarter: 2017Q4

REPORT INFORMATION
  Report Type: Spontaneous
  Country: CR (occurrence: CR)
  Receive Date: 20171031
  Receipt Date: 20171031
  Transmission Date: 20180321
  Serious: Yes (Congenital Anomaly, Other)
  Sender: FDA-Public Use
  Company Number: CR-ASTELLAS-2017US043847

PATIENT

DRUGS (1)
  1. TACROLIMUS. [Suspect]
     Active Substance: TACROLIMUS
     Indication: FOETAL EXPOSURE DURING PREGNANCY
     Dosage: UNK UNK, UNKNOWN FREQ.
     Route: 064

REACTIONS (7)
  - Trisomy 13 [Unknown]
  - Hypertrophic cardiomyopathy [Unknown]
  - Pericardial effusion [Unknown]
  - Premature baby [Unknown]
  - Ductus arteriosus stenosis foetal [Unknown]
  - Holoprosencephaly [Unknown]
  - Hypertelorism of orbit [Unknown]
